FAERS Safety Report 5447344-2 (Version None)
Quarter: 2007Q3

REPORT INFORMATION
  Report Type: 
  Country: None (occurrence: None)
  Receive Date: 20070910
  Receipt Date: 20070830
  Transmission Date: 20080115
  Serious: Yes (Other)
  Sender: FDA-Public Use
  Company Number: TR-JNJFOC-20070806509

PATIENT
  Age: 29 Year
  Sex: Female

DRUGS (2)
  1. TOPIRAMATE [Suspect]
     Dosage: PATIENT WAS GRADUALLY TITRATED FROM 25 MG.
  2. TOPIRAMATE [Suspect]
     Indication: MIGRAINE
     Dosage: INCREASED GRADUALLY FROM 25 MG DAILY TO 100 MG DAILY

REACTIONS (1)
  - UVEITIS [None]
